FAERS Safety Report 11929122 (Version 1)
Quarter: 2016Q1

REPORT INFORMATION
  Report Type: Spontaneous
  Country: CN (occurrence: CN)
  Receive Date: 20160120
  Receipt Date: 20160120
  Transmission Date: 20160526
  Serious: Yes (Hospitalization, Other)
  Sender: FDA-Public Use
  Company Number: CN-PFIZER INC-2016029189

PATIENT
  Age: 64 Year
  Sex: Male
  Weight: 59 kg

DRUGS (4)
  1. ZOLOFT [Suspect]
     Active Substance: SERTRALINE HYDROCHLORIDE
     Dosage: UNK
     Route: 048
     Dates: start: 20150717
  2. QUETIAPINE FUMARATE. [Suspect]
     Active Substance: QUETIAPINE FUMARATE
     Dosage: UNK
     Route: 048
     Dates: start: 20150717
  3. QUETIAPINE FUMARATE. [Suspect]
     Active Substance: QUETIAPINE FUMARATE
     Indication: SLEEP DISORDER
     Dosage: 100 MG, 1X/DAY
     Route: 048
     Dates: start: 20150714, end: 20150716
  4. ZOLOFT [Suspect]
     Active Substance: SERTRALINE HYDROCHLORIDE
     Indication: EMOTIONAL DISTRESS
     Dosage: 75 MG, 1X/DAY
     Route: 048
     Dates: start: 20150714, end: 20150716

REACTIONS (4)
  - Dysuria [Recovered/Resolved]
  - Hyperhidrosis [Recovered/Resolved]
  - Muscle tightness [Recovered/Resolved]
  - Tremor [Recovered/Resolved]

NARRATIVE: CASE EVENT DATE: 20150716
